FAERS Safety Report 6884867-3 (Version None)
Quarter: 2010Q3

REPORT INFORMATION
  Report Type: 
  Country: None (occurrence: None)
  Receive Date: 20100729
  Receipt Date: 20071109
  Transmission Date: 20110219
  Serious: Yes (Other)
  Sender: FDA-Public Use
  Company Number: US-PFIZER INC-2007075170

PATIENT
  Sex: Male
  Weight: 104.54 kg

DRUGS (5)
  1. CELEBREX [Suspect]
     Indication: BACK PAIN
     Dates: start: 20070906, end: 20070910
  2. NORVASC [Concomitant]
  3. VALSARTAN [Concomitant]
  4. NEXIUM [Concomitant]
  5. CYMBALTA [Concomitant]

REACTIONS (1)
  - RASH PRURITIC [None]
